FAERS Safety Report 25418352 (Version 1)
Quarter: 2025Q2

REPORT INFORMATION
  Report Type: Spontaneous
  Country: US (occurrence: None)
  Receive Date: 20250606
  Receipt Date: 20250606
  Transmission Date: 20250716
  Serious: Yes (Hospitalization)
  Sender: FDA-CTU
  Company Number: None

PATIENT
  Age: 80 Year
  Sex: Male

DRUGS (1)
  1. SULFAMETHOXAZOLE AND TRIMETHOPRIM [Suspect]
     Active Substance: SULFAMETHOXAZOLE\TRIMETHOPRIM
     Indication: Infection

REACTIONS (6)
  - Acute kidney injury [None]
  - Proteinuria [None]
  - Diet noncompliance [None]
  - Asymptomatic bacteriuria [None]
  - Hyperkalaemia [None]
  - Lymphoedema [None]

NARRATIVE: CASE EVENT DATE: 20250331
